FAERS Safety Report 14001101 (Version 1)
Quarter: 2017Q3

REPORT INFORMATION
  Report Type: Spontaneous
  Country: None (occurrence: US)
  Receive Date: 20170922
  Receipt Date: 20170922
  Transmission Date: 20171128
  Serious: Yes (Other)
  Sender: FDA-Public Use
  Company Number: US-MERZ NORTH AMERICA, INC.-17MRZ-00273

PATIENT
  Age: 46 Year
  Sex: Male

DRUGS (8)
  1. ANTIBIOTICS (NULL) [Concomitant]
     Route: 042
  2. BACLOFEN. [Concomitant]
     Active Substance: BACLOFEN
     Indication: HYPERTONIA
     Route: 048
  3. ANTIBIOTICS (NULL) [Concomitant]
     Route: 042
  4. BACLOFEN. [Concomitant]
     Active Substance: BACLOFEN
     Route: 037
  5. ANTIBIOTICS (NULL) [Concomitant]
     Route: 042
  6. BACLOFEN. [Concomitant]
     Active Substance: BACLOFEN
     Route: 037
  7. CEFAZOLIN [Concomitant]
     Active Substance: CEFAZOLIN
     Route: 042
  8. XEOMIN [Suspect]
     Active Substance: INCOBOTULINUMTOXINA
     Indication: MUSCLE SPASTICITY
     Dosage: 600 IU, EVERY 3 MONTHS
     Route: 030

REACTIONS (3)
  - Off label use [Unknown]
  - Therapeutic response decreased [Unknown]
  - Staphylococcal sepsis [Unknown]
